FAERS Safety Report 10486030 (Version 1)
Quarter: 2014Q3

REPORT INFORMATION
  Report Type: Spontaneous
  Country: US (occurrence: None)
  Receive Date: 20140930
  Receipt Date: 20140930
  Transmission Date: 20150326
  Serious: Yes (Other)
  Sender: FDA-Public Use
  Company Number: None

PATIENT

DRUGS (1)
  1. METHIONINE/INOSITOL/CHOLINE/VIT B12 MIC/B12 [Suspect]
     Active Substance: CHOLINE\CYANOCOBALAMIN\INOSITOL\METHIONINE

REACTIONS (1)
  - Wrong technique in drug usage process [None]

NARRATIVE: CASE EVENT DATE: 20140915
